FAERS Safety Report 7346331-7 (Version None)
Quarter: 2011Q1

REPORT INFORMATION
  Report Type: 
  Country: None (occurrence: None)
  Receive Date: 20110228
  Receipt Date: 20110207
  Transmission Date: 20110831
  Serious: Yes (Other)
  Sender: FDA-Public Use
  Company Number: 2011VX000514

PATIENT
  Age: 30 Year
  Sex: Male

DRUGS (2)
  1. INTERFERON ALFA-2B (INTERFERON ALFA-2B) [Suspect]
     Indication: HEPATITIS C
  2. RIBAVIRIN [Suspect]
     Indication: HEPATITIS C

REACTIONS (1)
  - VOGT-KOYANAGI-HARADA SYNDROME [None]
